FAERS Safety Report 20108755 (Version 1)
Quarter: 2021Q4

REPORT INFORMATION
  Report Type: Spontaneous
  Country: US (occurrence: US)
  Receive Date: 20211124
  Receipt Date: 20211124
  Transmission Date: 20220303
  Serious: No
  Sender: FDA-Public Use
  Company Number: MIQ-08122021-1248

PATIENT

DRUGS (2)
  1. IVERMECTIN [Suspect]
     Active Substance: IVERMECTIN
     Indication: COVID-19
     Dosage: 8 DF, QD
     Route: 048
     Dates: start: 202103, end: 2021
  2. IVERMECTIN [Suspect]
     Active Substance: IVERMECTIN
     Dosage: 8 DF, QD
     Route: 048
     Dates: start: 2021, end: 2021

REACTIONS (1)
  - Drug ineffective for unapproved indication [Recovered/Resolved]

NARRATIVE: CASE EVENT DATE: 20210101
